FAERS Safety Report 9830095 (Version 2)
Quarter: 2014Q1

REPORT INFORMATION
  Report Type: Spontaneous
  Country: SA (occurrence: SA)
  Receive Date: 20140120
  Receipt Date: 20140122
  Transmission Date: 20141002
  Serious: Yes (Death)
  Sender: FDA-Public Use
  Company Number: SA-SA-2014SA006233

PATIENT
  Age: 6 Year
  Sex: Male
  Weight: 12 kg

DRUGS (3)
  1. MYOZYME [Suspect]
     Indication: GLYCOGEN STORAGE DISEASE TYPE II
     Route: 042
     Dates: start: 200811, end: 201312
  2. ASPIRIN [Concomitant]
     Indication: CARDIOMYOPATHY
     Dosage: ROUTE: NGT
     Dates: start: 200811, end: 201312
  3. FUROSEMIDE [Concomitant]
     Indication: CARDIOMYOPATHY
     Dosage: ROUTE: NGT
     Dates: start: 200811, end: 201312

REACTIONS (1)
  - Pulmonary haemorrhage [Fatal]
